FAERS Safety Report 4792922-7 (Version None)
Quarter: 2005Q4

REPORT INFORMATION
  Report Type: 
  Country: None (occurrence: None)
  Receive Date: 20051010
  Receipt Date: 20051004
  Transmission Date: 20060501
  Serious: Yes (Life-Threatening)
  Sender: FDA-Public Use
  Company Number: IT-ROCHE-419817

PATIENT
  Age: 74 Year
  Sex: Female

DRUGS (9)
  1. ROCEPHIN [Suspect]
     Indication: PNEUMONIA
     Route: 042
     Dates: start: 20050901, end: 20050914
  2. DILTIAZAM [Concomitant]
     Route: 048
  3. CLONIDINE [Concomitant]
     Route: 048
  4. CAPTOPRIL [Concomitant]
     Route: 048
  5. FUROSEMIDE [Concomitant]
     Indication: CARDIAC FAILURE
     Route: 048
  6. ACETAZOLAMIDE [Concomitant]
     Indication: CARDIAC FAILURE
     Route: 048
  7. VANCOMYCIN [Concomitant]
     Indication: PNEUMONIA
     Route: 042
  8. AMPHOTERICIN B [Concomitant]
     Indication: PNEUMONIA
  9. DIGITALIS LANATA LEAF [Concomitant]
     Indication: CARDIAC FAILURE

REACTIONS (1)
  - TOXIC EPIDERMAL NECROLYSIS [None]
